FAERS Safety Report 8439460-8 (Version None)
Quarter: 2012Q2

REPORT INFORMATION
  Report Type: 
  Country: None (occurrence: None)
  Receive Date: 20120615
  Receipt Date: 20120601
  Transmission Date: 20120825
  Serious: Yes (Hospitalization)
  Sender: FDA-Public Use
  Company Number: KR-PURDUE-DEU-2012-0009026

PATIENT
  Age: 46 Year
  Sex: Male

DRUGS (4)
  1. MORPHINE SULFATE [Suspect]
     Dosage: 4.0 ML, PRN
     Route: 008
  2. MORPHINE SULFATE [Suspect]
     Indication: PAIN IN EXTREMITY
     Dosage: 0.5 ML, Q1H
     Route: 008
  3. TRAMADOL HCL [Suspect]
     Indication: PAIN
     Dosage: 50 MG, UNK
     Route: 042
  4. MORPHINE SULFATE [Suspect]
     Dosage: 0.3 MG, UNK
     Route: 037

REACTIONS (5)
  - SEDATION [None]
  - DYSARTHRIA [None]
  - TOXICITY TO VARIOUS AGENTS [None]
  - PNEUMONIA ASPIRATION [None]
  - RESPIRATORY DEPRESSION [None]
